FAERS Safety Report 7392833-7 (Version None)
Quarter: 2011Q2

REPORT INFORMATION
  Report Type: 
  Country: None (occurrence: None)
  Receive Date: 20110404
  Receipt Date: 20110329
  Transmission Date: 20111010
  Serious: Yes (Other)
  Sender: FDA-Public Use
  Company Number: CA-PFIZER INC-2011032552

PATIENT
  Age: 69 Year
  Sex: Male

DRUGS (3)
  1. LYRICA [Suspect]
     Dosage: 75 MG, 2X/DAY
     Dates: start: 20110101, end: 20110210
  2. CELEBREX [Concomitant]
     Dosage: 100 MG, UNK
     Dates: end: 20110201
  3. NEXIUM [Concomitant]
     Dosage: 40 MG, 1X/DAY

REACTIONS (11)
  - OEDEMA PERIPHERAL [None]
  - INCREASED APPETITE [None]
  - BLISTER [None]
  - DRY SKIN [None]
  - RASH [None]
  - PARAESTHESIA [None]
  - CYSTITIS [None]
  - EPISTAXIS [None]
  - FEELING HOT [None]
  - ERYTHEMA [None]
  - ACNE [None]
